FAERS Safety Report 5943192-5 (Version None)
Quarter: 2008Q4

REPORT INFORMATION
  Report Type: 
  Country: None (occurrence: None)
  Receive Date: 20081106
  Receipt Date: 20081031
  Transmission Date: 20090506
  Serious: Yes (Other)
  Sender: FDA-Public Use
  Company Number: B0502161A

PATIENT
  Sex: Female

DRUGS (3)
  1. PAROXETINE HCL [Suspect]
     Indication: DRUG USE FOR UNKNOWN INDICATION
     Dates: start: 19991126
  2. DIAZEPAM [Concomitant]
     Dates: start: 20060929
  3. PROCHLORPERAZINE [Concomitant]
     Dates: start: 19960821

REACTIONS (14)
  - AGGRESSION [None]
  - AGITATION [None]
  - ANXIETY [None]
  - CONFUSIONAL STATE [None]
  - DISTURBANCE IN ATTENTION [None]
  - DIZZINESS [None]
  - DRUG WITHDRAWAL SYNDROME [None]
  - DYSMENORRHOEA [None]
  - FATIGUE [None]
  - LETHARGY [None]
  - NIGHT SWEATS [None]
  - SUICIDAL IDEATION [None]
  - VERTIGO [None]
  - WEIGHT INCREASED [None]
